FAERS Safety Report 13184253 (Version 3)
Quarter: 2017Q2

REPORT INFORMATION
  Report Type: Spontaneous
  Country: US (occurrence: US)
  Receive Date: 20170203
  Receipt Date: 20170607
  Transmission Date: 20170830
  Serious: Yes (Other)
  Sender: FDA-Public Use
  Company Number: US-PFIZER INC-2017046765

PATIENT
  Sex: Female

DRUGS (25)
  1. XYREM [Suspect]
     Active Substance: SODIUM OXYBATE
     Indication: CATAPLEXY
     Dosage: 2.25 G, 2X/DAY
     Route: 048
     Dates: start: 20040701
  2. OXYCODONE HYDROCHLORIDE. [Suspect]
     Active Substance: OXYCODONE HYDROCHLORIDE
     Indication: BREAKTHROUGH PAIN
     Dosage: 15 MG, AS NEEDED, PRN
     Route: 048
     Dates: start: 20130425
  3. ZOFRAN [Concomitant]
     Active Substance: ONDANSETRON HYDROCHLORIDE
     Indication: NAUSEA
     Dosage: UNK, AS NEEDED
     Route: 048
  4. LOW-OGESTREL [Concomitant]
     Active Substance: ETHINYL ESTRADIOL\NORGESTREL
     Indication: HORMONE REPLACEMENT THERAPY
     Dosage: 1 DF, 1X/DAY
  5. LOW-OGESTREL [Concomitant]
     Active Substance: ETHINYL ESTRADIOL\NORGESTREL
     Indication: CONTRACEPTION
  6. SILENOR [Suspect]
     Active Substance: DOXEPIN HYDROCHLORIDE
     Dosage: 6 MG, 1X/DAY, AT BEDTIME
     Route: 048
  7. SONATA [Concomitant]
     Active Substance: ZALEPLON
  8. MAGNESIUM SULFATE. [Suspect]
     Active Substance: MAGNESIUM SULFATE
     Indication: SLEEP DISORDER
  9. XYREM [Suspect]
     Active Substance: SODIUM OXYBATE
     Indication: NARCOLEPSY
     Dosage: 6 G, 2X/DAY
     Route: 048
     Dates: start: 20090201
  10. ATIVAN [Suspect]
     Active Substance: LORAZEPAM
     Dosage: 2 MG, 2X/DAY
     Route: 048
     Dates: start: 20130425
  11. KLONOPIN [Suspect]
     Active Substance: CLONAZEPAM
     Dosage: 2 MG AT BEDTIME, 1/2 TO 1 PILL DURING DAY
     Dates: start: 20130425
  12. FENTANYL CITRATE. [Suspect]
     Active Substance: FENTANYL CITRATE
     Indication: PAIN
     Dosage: 75 UG, UNK, /HOUR
     Route: 062
     Dates: start: 20120926
  13. MAGNESIUM SULFATE. [Suspect]
     Active Substance: MAGNESIUM SULFATE
     Indication: MUSCLE RELAXANT THERAPY
     Dosage: 10 MG, 1X/DAY AT BEDTIME
     Route: 048
     Dates: start: 20130717
  14. MAGNESIUM SULFATE. [Suspect]
     Active Substance: MAGNESIUM SULFATE
     Indication: ANXIETY
  15. NUVIGIL [Suspect]
     Active Substance: ARMODAFINIL
     Indication: SOMNOLENCE
     Dosage: 250 MG, 1X/DAY
     Route: 048
  16. OMEPRAZOLE. [Concomitant]
     Active Substance: OMEPRAZOLE
     Indication: REFLUX GASTRITIS
     Dosage: 20 MG, 1X/DAY
  17. DIAZEPAM. [Suspect]
     Active Substance: DIAZEPAM
     Dosage: 10 MG, 1X/DAY
     Route: 048
     Dates: start: 20130717
  18. MAGNESIUM SULFATE. [Suspect]
     Active Substance: MAGNESIUM SULFATE
     Indication: DIARRHOEA
  19. VITAMIN B3 [Concomitant]
     Active Substance: NIACIN
     Dosage: UNK
  20. LOMOTIL [Suspect]
     Active Substance: ATROPINE SULFATE\DIPHENOXYLATE HYDROCHLORIDE
     Dosage: UNK
     Route: 048
     Dates: start: 20140228
  21. EPIPEN [Concomitant]
     Active Substance: EPINEPHRINE
     Indication: ANAPHYLACTIC REACTION
     Dosage: UNK
  22. TIZANIDINE. [Suspect]
     Active Substance: TIZANIDINE
     Dosage: UNK UNK, 2X/DAY, 4 MG, 1 TO 2 PILLS
     Route: 048
  23. ROZEREM [Suspect]
     Active Substance: RAMELTEON
     Dosage: 8 MG, 1X/DAY, AT BEDTIME
     Route: 048
  24. AMBIEN [Concomitant]
     Active Substance: ZOLPIDEM TARTRATE
     Dosage: UNK
     Dates: start: 20141121
  25. FLECTOR [Suspect]
     Active Substance: DICLOFENAC EPOLAMINE
     Indication: ANTIINFLAMMATORY THERAPY
     Dosage: 180 MG, 2X/DAY
     Route: 062

REACTIONS (4)
  - Hyperhidrosis [Not Recovered/Not Resolved]
  - Intentional product use issue [Unknown]
  - Constipation [Not Recovered/Not Resolved]
  - Drug use disorder [Not Recovered/Not Resolved]
